FAERS Safety Report 5741243-4 (Version None)
Quarter: 2008Q2

REPORT INFORMATION
  Report Type: 
  Country: None (occurrence: None)
  Receive Date: 20080516
  Receipt Date: 20080505
  Transmission Date: 20081010
  Serious: Yes (Other)
  Sender: FDA-Public Use
  Company Number: BR-PFIZER INC-2008041622

PATIENT
  Sex: Female

DRUGS (2)
  1. PHENYTOIN [Suspect]
     Indication: EPILEPSY
  2. ANTIEPILEPTICS [Suspect]
     Indication: EPILEPSY

REACTIONS (2)
  - GINGIVAL HYPERPLASIA [None]
  - PERIODONTITIS [None]
